FAERS Safety Report 6896688-6 (Version None)
Quarter: 2010Q3

REPORT INFORMATION
  Report Type: 
  Country: None (occurrence: None)
  Receive Date: 20100802
  Receipt Date: 20070206
  Transmission Date: 20110219
  Serious: No
  Sender: FDA-Public Use
  Company Number: US-PFIZER INC-2007010354

PATIENT
  Age: 43 Year
  Sex: Female
  Weight: 59 kg

DRUGS (4)
  1. LYRICA [Suspect]
     Indication: NEURALGIA
     Dates: start: 20061101
  2. ALL OTHER THERAPEUTIC PRODUCTS [Concomitant]
  3. IBUPROFEN [Concomitant]
  4. VITAMINS [Concomitant]

REACTIONS (1)
  - PARAESTHESIA [None]
